FAERS Safety Report 7906935-7 (Version None)
Quarter: 2011Q4

REPORT INFORMATION
  Report Type: 
  Country: None (occurrence: None)
  Receive Date: 20111110
  Receipt Date: 20111102
  Transmission Date: 20120403
  Serious: Yes (Hospitalization)
  Sender: FDA-Public Use
  Company Number: US-EISAI INC-E3810-05055-SPO-US

PATIENT
  Sex: Male

DRUGS (3)
  1. ACIPHEX [Suspect]
     Route: 048
     Dates: start: 20020101, end: 20060101
  2. ACIPHEX [Suspect]
     Route: 048
     Dates: start: 20110701
  3. ACIPHEX [Suspect]
     Route: 048
     Dates: start: 20060401, end: 20090101

REACTIONS (1)
  - ASTHMA [None]
